FAERS Safety Report 23885871 (Version 1)
Quarter: 2024Q2

REPORT INFORMATION
  Report Type: Spontaneous
  Country: CN (occurrence: CN)
  Receive Date: 20240522
  Receipt Date: 20240522
  Transmission Date: 20240716
  Serious: Yes (Other)
  Sender: FDA-Public Use
  Company Number: CN-ASTELLAS-2024US014378

PATIENT
  Age: 78 Year
  Sex: Male
  Weight: 56 kg

DRUGS (3)
  1. CRESEMBA [Suspect]
     Active Substance: ISAVUCONAZONIUM SULFATE
     Indication: Pneumonia
     Dosage: UNK, UNKNOWN FREQ. (LOADING DOSE)
     Route: 048
     Dates: start: 20240430, end: 20240501
  2. CRESEMBA [Suspect]
     Active Substance: ISAVUCONAZONIUM SULFATE
     Route: 048
     Dates: start: 20240502
  3. VORICONAZOLE [Suspect]
     Active Substance: VORICONAZOLE
     Indication: Product used for unknown indication
     Dosage: UNK UNK, UNKNOWN FREQ.
     Route: 065
     Dates: end: 20240329

REACTIONS (7)
  - Depressed level of consciousness [Not Recovered/Not Resolved]
  - Dementia [Not Recovered/Not Resolved]
  - Indifference [Not Recovered/Not Resolved]
  - Restlessness [Not Recovered/Not Resolved]
  - Mania [Not Recovered/Not Resolved]
  - Screaming [Unknown]
  - Off label use [Unknown]

NARRATIVE: CASE EVENT DATE: 20240430
